FAERS Safety Report 19286183 (Version 1)
Quarter: 2021Q2

REPORT INFORMATION
  Report Type: Spontaneous
  Country: US (occurrence: US)
  Receive Date: 20210521
  Receipt Date: 20210521
  Transmission Date: 20210717
  Serious: No
  Sender: FDA-Public Use
  Company Number: US-CELGENEUS-USA-20210501584

PATIENT
  Sex: Female
  Weight: 64.92 kg

DRUGS (1)
  1. REVLIMID [Suspect]
     Active Substance: LENALIDOMIDE
     Indication: PLASMA CELL MYELOMA
     Dosage: 10 MILLIGRAM
     Route: 048
     Dates: start: 20210322

REACTIONS (3)
  - Renal disorder [Unknown]
  - Seasonal allergy [Unknown]
  - Constipation [Unknown]

NARRATIVE: CASE EVENT DATE: 2021
